FAERS Safety Report 14358467 (Version 1)
Quarter: 2018Q1

REPORT INFORMATION
  Report Type: Spontaneous
  Country: US (occurrence: US)
  Receive Date: 20180105
  Receipt Date: 20180105
  Transmission Date: 20180509
  Serious: No
  Sender: FDA-Public Use
  Company Number: US-SA-2017SA227865

PATIENT
  Age: 68 Year
  Sex: Female

DRUGS (2)
  1. DUPIXENT [Suspect]
     Active Substance: DUPILUMAB
     Indication: DERMATITIS ATOPIC
     Route: 058
     Dates: start: 201708
  2. CYCLOSPORINE. [Concomitant]
     Active Substance: CYCLOSPORINE
     Route: 065

REACTIONS (11)
  - Paranasal sinus hypersecretion [Unknown]
  - Erythema of eyelid [Recovering/Resolving]
  - Eyelid oedema [Recovering/Resolving]
  - Product use issue [Unknown]
  - Ocular hyperaemia [Recovering/Resolving]
  - Eye irritation [Recovering/Resolving]
  - Lacrimation increased [Recovering/Resolving]
  - Eye pruritus [Recovering/Resolving]
  - Respiratory disorder [Unknown]
  - Cough [Unknown]
  - Eyelid margin crusting [Recovering/Resolving]

NARRATIVE: CASE EVENT DATE: 2017
